FAERS Safety Report 6187509-8 (Version None)
Quarter: 2009Q2

REPORT INFORMATION
  Report Type: 
  Country: None (occurrence: None)
  Receive Date: 20090508
  Receipt Date: 20090423
  Transmission Date: 20091009
  Serious: Yes (Disabling)
  Sender: FDA-Public Use
  Company Number: 2009S1007235

PATIENT
  Age: 63 Year
  Sex: Female

DRUGS (3)
  1. CARBAMAZEPINE [Suspect]
     Indication: FACIAL NEURALGIA
     Dosage: 100 MG; TWICE A DAY; ORAL
     Route: 048
     Dates: start: 20090126, end: 20090220
  2. OMEPRAZOLE [Suspect]
     Indication: DRUG USE FOR UNKNOWN INDICATION
     Dosage: 20 MG; DAILY; ORAL
     Route: 048
     Dates: start: 20090126, end: 20090220
  3. DICLOFENAC (DICLOFENAC) [Suspect]
     Indication: FACIAL NEURALGIA
     Dosage: 50 MG; 3 TIMES A DAY; ORAL
     Route: 048

REACTIONS (3)
  - CHILLS [None]
  - LIVER DISORDER [None]
  - MALAISE [None]
